FAERS Safety Report 21960734 (Version 1)
Quarter: 2023Q1

REPORT INFORMATION
  Report Type: Spontaneous
  Country: US (occurrence: US)
  Receive Date: 20230207
  Receipt Date: 20230207
  Transmission Date: 20230418
  Serious: No
  Sender: FDA-Public Use
  Company Number: US-ENDO PHARMACEUTICALS INC-2022-003641

PATIENT
  Sex: Male

DRUGS (1)
  1. FORTESTA [Suspect]
     Active Substance: TESTOSTERONE
     Indication: Product used for unknown indication
     Dosage: 2 DF, DAILY (TWO SQUIRTS EACH DAY TO THE UPPER AREA ON MY THIGH)
     Route: 065

REACTIONS (4)
  - Skin exfoliation [Unknown]
  - Erythema [Unknown]
  - Pruritus [Unknown]
  - Skin irritation [Unknown]
